FAERS Safety Report 8623553-6 (Version None)
Quarter: 2012Q3

REPORT INFORMATION
  Report Type: 
  Country: None (occurrence: None)
  Receive Date: 20120827
  Receipt Date: 20120808
  Transmission Date: 20120928
  Serious: No
  Sender: FDA-Public Use
  Company Number: US-MYLANLABS-2012S1008831

PATIENT
  Age: 69 Year
  Sex: Female
  Weight: 52.16 kg

DRUGS (4)
  1. OXYBUTYNIN [Concomitant]
     Route: 048
  2. WELLBUTRIN [Concomitant]
     Route: 048
  3. LANSOPRAZOLE [Suspect]
     Indication: GASTROOESOPHAGEAL REFLUX DISEASE
     Route: 048
     Dates: start: 20120424, end: 20120425
  4. LEVOTHYROXINE SODIUM [Concomitant]
     Route: 048

REACTIONS (3)
  - DYSPEPSIA [None]
  - VOMITING [None]
  - CHEST DISCOMFORT [None]
